FAERS Safety Report 10983698 (Version 1)
Quarter: 2015Q2

REPORT INFORMATION
  Report Type: Spontaneous
  Country: FR (occurrence: FR)
  Receive Date: 20150403
  Receipt Date: 20150403
  Transmission Date: 20150821
  Serious: Yes (Death, Hospitalization)
  Sender: FDA-Public Use
  Company Number: FR-PFIZER INC-2015114748

PATIENT
  Age: 83 Year
  Sex: Female

DRUGS (16)
  1. TRIFLUCAN [Suspect]
     Active Substance: FLUCONAZOLE
     Dosage: UNK
     Route: 048
     Dates: start: 20150310
  2. PREVISCAN [Suspect]
     Active Substance: FLUINDIONE
     Dosage: 20 MG, SINGLE
     Route: 048
     Dates: start: 20150311, end: 20150311
  3. SINGULAIR [Concomitant]
     Active Substance: MONTELUKAST SODIUM
     Dosage: 1 UNK, UNK
     Route: 048
  4. TAHOR [Concomitant]
     Active Substance: ATORVASTATIN CALCIUM
     Dosage: 20 MG, 1X/DAY
     Route: 048
  5. LYRICA [Concomitant]
     Active Substance: PREGABALIN
     Dosage: 75 MG, 2X/DAY
     Route: 048
  6. SOLUPRED [Concomitant]
     Active Substance: PREDNISOLONE
     Dosage: 10 MG (5MG X2), 1X/DAY
     Route: 048
  7. EUPANTOL [Concomitant]
     Active Substance: PANTOPRAZOLE SODIUM
     Dosage: 20 MG, 1X/DAY
     Route: 048
  8. FOSAMAX [Concomitant]
     Active Substance: ALENDRONATE SODIUM
     Route: 048
  9. LASILIX [Concomitant]
     Active Substance: FUROSEMIDE
     Dosage: 1 DF, UNK
     Route: 048
  10. SOLUPRED [Concomitant]
     Active Substance: PREDNISOLONE
     Dosage: 40 MG (20MG X 2), 1X/DAY
     Route: 048
     Dates: start: 20150302, end: 20150311
  11. NOVONORM [Concomitant]
     Active Substance: REPAGLINIDE
     Dosage: 0.5 MG, 3X/DAY
     Route: 048
  12. ACUPAN [Concomitant]
     Active Substance: NEFOPAM HYDROCHLORIDE
     Dosage: 1 DF, 3X/DAY
     Dates: start: 20150311
  13. LOVENOX [Suspect]
     Active Substance: ENOXAPARIN SODIUM
     Indication: DEEP VEIN THROMBOSIS
     Dosage: 0.8 ML, 2X/DAY
     Route: 058
     Dates: start: 20150305, end: 20150311
  14. PARACETAMOL [Suspect]
     Active Substance: ACETAMINOPHEN
     Dosage: 2 DF, 4X/DAY
     Route: 048
     Dates: start: 20150309, end: 20150311
  15. LEVOTHYROX [Concomitant]
     Active Substance: LEVOTHYROXINE
     Dosage: 75 ?G (50?G+25?G), 1X/DAY
     Route: 048
  16. ATROVENT [Concomitant]
     Active Substance: IPRATROPIUM BROMIDE
     Dosage: 0.50 G/L, 3X/DAY
     Route: 048

REACTIONS (2)
  - Retroperitoneal haematoma [Fatal]
  - Shock haemorrhagic [Fatal]

NARRATIVE: CASE EVENT DATE: 20150311
